FAERS Safety Report 9133991 (Version 3)
Quarter: 2013Q2

REPORT INFORMATION
  Report Type: Report from Study
  Country: GB (occurrence: GB)
  Receive Date: 20130304
  Receipt Date: 20130415
  Transmission Date: 20140414
  Serious: Yes (Death)
  Sender: FDA-Public Use
  Company Number: GB-AMGEN-GBRCT2013013649

PATIENT
  Age: 65 Year
  Sex: Female
  Weight: 76 kg

DRUGS (12)
  1. ETANERCEPT [Suspect]
     Indication: RHEUMATOID ARTHRITIS
     Dosage: 25 MG, 2 TIMES/WK
     Dates: start: 20040715
  2. METHOTREXATE [Concomitant]
     Dosage: UNK
  3. TRAMADOL [Concomitant]
     Dosage: UNK
  4. MST                                /00036302/ [Concomitant]
     Dosage: UNK
  5. CYCLIZINE [Concomitant]
     Dosage: UNK
  6. CITALOPRAM [Concomitant]
     Dosage: UNK
  7. PREDNISOLONE [Concomitant]
     Dosage: UNK
  8. CALCIUM D3                         /00944201/ [Concomitant]
     Dosage: UNK
  9. DIAZEPAM [Concomitant]
     Dosage: UNK
  10. AMITRIPTYLINE [Concomitant]
     Dosage: UNK
  11. OMEPRAZOLE [Concomitant]
     Dosage: UNK
  12. ZOLEDRONIC ACID [Concomitant]
     Dosage: UNK

REACTIONS (3)
  - Abdominal infection [Fatal]
  - Diverticulum [Fatal]
  - Urinary tract infection [Fatal]
